FAERS Safety Report 4714470-2 (Version None)
Quarter: 2005Q3

REPORT INFORMATION
  Report Type: 
  Country: None (occurrence: None)
  Receive Date: 20050705
  Receipt Date: 20041209
  Transmission Date: 20060218
  Serious: Yes (Hospitalization)
  Sender: FDA-Public Use
  Company Number: 2004-0007842

PATIENT
  Age: 65 Year
  Sex: Male

DRUGS (4)
  1. VIREAD [Suspect]
  2. DIDANOSINE [Concomitant]
  3. EFAVIRENZ [Concomitant]
  4. NVP (NEVIRAPINE) [Concomitant]

REACTIONS (2)
  - NEPHROPATHY TOXIC [None]
  - RENAL FAILURE [None]
